FAERS Safety Report 6973191-6 (Version None)
Quarter: 2010Q3

REPORT INFORMATION
  Report Type: 
  Country: None (occurrence: None)
  Receive Date: 20100909
  Receipt Date: 20100830
  Transmission Date: 20110219
  Serious: Yes (Other)
  Sender: FDA-Public Use
  Company Number: BR-ROCHE-724492

PATIENT

DRUGS (3)
  1. PEGINTERFERON ALFA-2A [Suspect]
     Route: 065
  2. RIBAVIRIN [Suspect]
     Dosage: DOSE: 1 OR 1.25 GRAM/ DAY.
     Route: 065
  3. PEGINTERFERON ALFA-2B [Suspect]
     Dosage: DOSE: 1.5 UG/KG PER WEEK.
     Route: 065

REACTIONS (19)
  - ALOPECIA [None]
  - ANAEMIA [None]
  - DECREASED APPETITE [None]
  - DEPRESSION [None]
  - DERMATITIS [None]
  - DIARRHOEA [None]
  - DIZZINESS [None]
  - DYSPNOEA [None]
  - HYPOTHYROIDISM [None]
  - INFECTION [None]
  - INFLUENZA LIKE ILLNESS [None]
  - INSOMNIA [None]
  - IRRITABILITY [None]
  - NAUSEA [None]
  - NEUTROPENIA [None]
  - PANIC ATTACK [None]
  - THROMBOCYTOPENIA [None]
  - VISUAL ACUITY REDUCED [None]
  - WEIGHT DECREASED [None]
